FAERS Safety Report 14937462 (Version 1)
Quarter: 2018Q2

REPORT INFORMATION
  Report Type: Report from Study
  Country: GB (occurrence: GB)
  Receive Date: 20180525
  Receipt Date: 20180525
  Transmission Date: 20180711
  Serious: Yes (Other)
  Sender: FDA-Public Use
  Company Number: GB-BRISTOL-MYERS SQUIBB COMPANY-BMS-2018-043920

PATIENT
  Sex: Female

DRUGS (1)
  1. EFAVIRENZ. [Suspect]
     Active Substance: EFAVIRENZ
     Indication: HIV INFECTION
     Dosage: UNK
     Route: 048

REACTIONS (4)
  - Gestational hypertension [Unknown]
  - Live birth [Unknown]
  - Maternal exposure during pregnancy [Recovered/Resolved]
  - Product use issue [Unknown]
